FAERS Safety Report 5465572-7 (Version None)
Quarter: 2007Q3

REPORT INFORMATION
  Report Type: 
  Country: None (occurrence: None)
  Receive Date: 20070924
  Receipt Date: 19940301
  Transmission Date: 20080115
  Serious: Yes (Other)
  Sender: FDA-Public Use
  Company Number: FR-PFIZER INC-2006121858

PATIENT
  Sex: Female

DRUGS (5)
  1. IRINOTECAN HCL [Suspect]
     Indication: BREAST CANCER FEMALE
     Dosage: DAILY DOSE:960MG-FREQ:EVERY 3 WEEKS
     Route: 042
     Dates: start: 19930331, end: 19930331
  2. IRINOTECAN HCL [Suspect]
     Dosage: DAILY DOSE:960MG-FREQ:EVERY 3 WEEKS
     Route: 042
     Dates: start: 19930423, end: 19930423
  3. IRINOTECAN HCL [Suspect]
     Dosage: DAILY DOSE:560MG-FREQ:EVERY 3 WEEKS
     Route: 042
     Dates: start: 19930519, end: 19930519
  4. FUROSEMIDE [Concomitant]
     Route: 048
  5. MORPHINE [Concomitant]
     Route: 048

REACTIONS (1)
  - HAEMATEMESIS [None]
